FAERS Safety Report 22298959 (Version 2)
Quarter: 2023Q2

REPORT INFORMATION
  Report Type: Report from Study
  Country: CA (occurrence: CA)
  Receive Date: 20230509
  Receipt Date: 20230607
  Transmission Date: 20230721
  Serious: Yes (Other)
  Sender: FDA-Public Use
  Company Number: CA-002147023-NVSC2023CA103899

PATIENT
  Age: 48 Year
  Sex: Male

DRUGS (1)
  1. HYRIMOZ [Suspect]
     Active Substance: ADALIMUMAB-ADAZ
     Indication: Crohn^s disease
     Dosage: 40 MG
     Route: 058
     Dates: start: 20230131

REACTIONS (4)
  - Nephrolithiasis [Recovered/Resolved]
  - Abdominal discomfort [Unknown]
  - Dehydration [Unknown]
  - Influenza [Unknown]
